FAERS Safety Report 9134698 (Version 1)
Quarter: 2013Q1

REPORT INFORMATION
  Report Type: Spontaneous
  Country: US (occurrence: US)
  Receive Date: 20130304
  Receipt Date: 20130304
  Transmission Date: 20140127
  Serious: No
  Sender: FDA-Public Use
  Company Number: US-ENDO PHARMACEUTICALS INC.-VALS20120030

PATIENT
  Age: 75 Year
  Sex: Male

DRUGS (2)
  1. VALSTAR [Suspect]
     Indication: BLADDER CANCER
     Dosage: UNKNOWN
     Route: 043
     Dates: start: 20120521, end: 20120521
  2. VALSTAR [Suspect]
     Dosage: UNKNOWN
     Route: 043
     Dates: start: 2012, end: 2012

REACTIONS (6)
  - Scratch [Recovered/Resolved]
  - Bladder spasm [Recovered/Resolved]
  - Urge incontinence [Recovered/Resolved]
  - Accidental exposure to product [Recovered/Resolved]
  - Underdose [Recovered/Resolved]
  - Bladder instillation procedure [Recovered/Resolved]
